FAERS Safety Report 21134040 (Version 1)
Quarter: 2022Q3

REPORT INFORMATION
  Report Type: Spontaneous
  Country: US (occurrence: None)
  Receive Date: 20220726
  Receipt Date: 20220726
  Transmission Date: 20221026
  Serious: Yes (Hospitalization)
  Sender: FDA-Public Use
  Company Number: None

PATIENT
  Age: 45 Year
  Sex: Female
  Weight: 61.65 kg

DRUGS (1)
  1. LUPRON [Suspect]
     Active Substance: LEUPROLIDE ACETATE
     Indication: Endometriosis

REACTIONS (10)
  - Drug ineffective [None]
  - Haemorrhage [None]
  - Condition aggravated [None]
  - Bone pain [None]
  - Fibromyalgia [None]
  - Osteoarthritis [None]
  - Mental disorder [None]
  - Hot flush [None]
  - Mood swings [None]
  - Benign breast neoplasm [None]
